FAERS Safety Report 14106394 (Version 3)
Quarter: 2017Q4

REPORT INFORMATION
  Report Type: Spontaneous
  Country: AT (occurrence: AT)
  Receive Date: 20171018
  Receipt Date: 20171115
  Transmission Date: 20180321
  Serious: Yes (Other)
  Sender: FDA-Public Use
  Company Number: AT-PFIZER INC-2017440384

PATIENT
  Age: 55 Year
  Sex: Female
  Weight: 61 kg

DRUGS (36)
  1. EFECTIN ER [Suspect]
     Active Substance: VENLAFAXINE HYDROCHLORIDE
     Dosage: 150 MG, UNK
     Dates: start: 20170331
  2. SEROQUEL [Suspect]
     Active Substance: QUETIAPINE FUMARATE
     Dosage: 350 MG, UNK
     Dates: start: 20170401, end: 20170424
  3. ZYPREXA [Concomitant]
     Active Substance: OLANZAPINE
     Dosage: 20 MG, UNK
     Dates: start: 20170319, end: 20170330
  4. TEMESTA (LORAZEPAM) [Concomitant]
     Active Substance: LORAZEPAM
     Dosage: 2 MG, UNK
     Dates: start: 20170324, end: 20170403
  5. TEMESTA (LORAZEPAM) [Concomitant]
     Active Substance: LORAZEPAM
     Dosage: 2 MG, UNK
     Dates: start: 20170515, end: 20170516
  6. LEPONEX [Suspect]
     Active Substance: CLOZAPINE
     Dosage: 50 MG, UNK
     Dates: start: 20170410, end: 20170416
  7. TEMESTA (LORAZEPAM) [Concomitant]
     Active Substance: LORAZEPAM
     Dosage: 1.5 MG, UNK
     Dates: start: 20170319, end: 20170323
  8. EFECTIN ER [Suspect]
     Active Substance: VENLAFAXINE HYDROCHLORIDE
     Dosage: 375 MG, UNK
     Dates: end: 20170318
  9. ZYPREXA [Concomitant]
     Active Substance: OLANZAPINE
     Dosage: 5 MG, UNK
     Dates: start: 20170331, end: 20170402
  10. TEMESTA (LORAZEPAM) [Concomitant]
     Active Substance: LORAZEPAM
     Dosage: 1.5 MG, UNK
     Dates: start: 20170404, end: 20170504
  11. SEROQUEL [Suspect]
     Active Substance: QUETIAPINE FUMARATE
     Dosage: 100 MG, UNK
     Dates: start: 20170324, end: 20170330
  12. SEROQUEL [Suspect]
     Active Substance: QUETIAPINE FUMARATE
     Dosage: 300 MG, UNK
     Dates: start: 20170425, end: 20170503
  13. SEROQUEL XR [Concomitant]
     Active Substance: QUETIAPINE FUMARATE
     Dosage: 50 MG, UNK
     Dates: start: 20170318, end: 20170318
  14. SEROQUEL XR [Concomitant]
     Active Substance: QUETIAPINE FUMARATE
     Dosage: 100 MG, UNK
     Dates: start: 20170319, end: 20170319
  15. SEROQUEL XR [Concomitant]
     Active Substance: QUETIAPINE FUMARATE
     Dosage: 300 MG, UNK
     Dates: start: 20170324, end: 20170330
  16. EFECTIN ER [Suspect]
     Active Substance: VENLAFAXINE HYDROCHLORIDE
     Dosage: 300 MG, UNK
     Dates: start: 20170319, end: 20170323
  17. EFECTIN ER [Suspect]
     Active Substance: VENLAFAXINE HYDROCHLORIDE
     Dosage: 225 MG, UNK
     Dates: start: 20170324, end: 20170330
  18. MIRTABENE [Suspect]
     Active Substance: MIRTAZAPINE
     Dosage: 30 MG, UNK
     Dates: start: 20170317
  19. LEPONEX [Suspect]
     Active Substance: CLOZAPINE
     Dosage: 75 MG, UNK
     Dates: start: 20170417, end: 20170424
  20. SEROQUEL XR [Concomitant]
     Active Substance: QUETIAPINE FUMARATE
     Dosage: 200 MG, UNK
     Dates: start: 20170320, end: 20170323
  21. SEROQUEL [Suspect]
     Active Substance: QUETIAPINE FUMARATE
     Dosage: 125 MG, UNK
     Dates: end: 20170319
  22. SEROQUEL [Suspect]
     Active Substance: QUETIAPINE FUMARATE
     Dosage: 75 MG, UNK
     Dates: start: 20170320, end: 20170323
  23. SEROQUEL [Suspect]
     Active Substance: QUETIAPINE FUMARATE
     Dosage: 50 MG, UNK
     Dates: start: 20170331, end: 20170331
  24. LEPONEX [Suspect]
     Active Substance: CLOZAPINE
     Dosage: 100 MG, UNK
     Dates: start: 20170425, end: 20170430
  25. LEPONEX [Suspect]
     Active Substance: CLOZAPINE
     Dosage: 125 MG, UNK
     Dates: start: 20170501, end: 20170501
  26. LEPONEX [Suspect]
     Active Substance: CLOZAPINE
     Dosage: 100 MG, UNK
     Dates: start: 20170502, end: 20170502
  27. ZYPREXA [Concomitant]
     Active Substance: OLANZAPINE
     Dosage: 15 MG, UNK
     Dates: start: 20170318, end: 20170318
  28. TEMESTA (LORAZEPAM) [Concomitant]
     Active Substance: LORAZEPAM
     Dosage: 4 MG, UNK
     Dates: start: 20170505, end: 20170510
  29. AKINETON [Concomitant]
     Active Substance: BIPERIDEN HYDROCHLORIDE
     Dosage: 4 MG, UNK
     Dates: start: 20170426, end: 20170504
  30. ZELDOX [Concomitant]
     Active Substance: ZIPRASIDONE
     Dosage: 60 MG, UNK
     Dates: start: 20170511, end: 20170511
  31. ZELDOX [Concomitant]
     Active Substance: ZIPRASIDONE
     Dosage: UNK
     Dates: start: 20170512
  32. TEMESTA (LORAZEPAM) [Concomitant]
     Active Substance: LORAZEPAM
     Dosage: 1.5 MG, UNK
     Dates: start: 20170517
  33. LEPONEX [Suspect]
     Active Substance: CLOZAPINE
     Dosage: 25 MG, DAILY
     Dates: start: 20170401, end: 20170410
  34. TEMESTA (LORAZEPAM) [Concomitant]
     Active Substance: LORAZEPAM
     Dosage: 0.5 MG, UNK
     Dates: start: 20170318, end: 20170318
  35. TEMESTA (LORAZEPAM) [Concomitant]
     Active Substance: LORAZEPAM
     Dosage: 3 MG, UNK
     Dates: start: 20170511, end: 20170514
  36. ZELDOX [Concomitant]
     Active Substance: ZIPRASIDONE
     Dosage: 40 MG, UNK
     Dates: start: 20170509, end: 20170510

REACTIONS (3)
  - Eosinophilia [Recovering/Resolving]
  - White blood cell count decreased [Unknown]
  - Neutropenia [Recovering/Resolving]

NARRATIVE: CASE EVENT DATE: 2017
